FAERS Safety Report 22650470 (Version 1)
Quarter: 2023Q2

REPORT INFORMATION
  Report Type: Spontaneous
  Country: GR (occurrence: GR)
  Receive Date: 20230628
  Receipt Date: 20230628
  Transmission Date: 20230722
  Serious: Yes (Hospitalization)
  Sender: FDA-Public Use
  Company Number: GR-PFIZER INC-PV202300111418

PATIENT
  Age: 70 Year
  Sex: Male

DRUGS (3)
  1. INLYTA [Suspect]
     Active Substance: AXITINIB
     Indication: Renal cancer
     Dosage: 5 MG, 2X/DAY
  2. INLYTA [Suspect]
     Active Substance: AXITINIB
     Dosage: 3 MG, 2X/DAY
  3. BAVENCIO [Concomitant]
     Active Substance: AVELUMAB
     Indication: Renal cancer
     Dosage: 800 MG, EVERY 15 DAYS

REACTIONS (3)
  - Hypertension [Recovered/Resolved]
  - Hepatic enzyme increased [Recovered/Resolved]
  - Renal impairment [Recovered/Resolved]
